FAERS Safety Report 9804321 (Version 2)
Quarter: 2014Q1

REPORT INFORMATION
  Report Type: Spontaneous
  Country: GB (occurrence: GB)
  Receive Date: 20140108
  Receipt Date: 20140108
  Transmission Date: 20141002
  Serious: Yes (Hospitalization, Other)
  Sender: FDA-Public Use
  Company Number: PHFR2013GB003216

PATIENT
  Age: 45 Year
  Sex: Male

DRUGS (3)
  1. CLOZARIL [Suspect]
     Indication: SCHIZOPHRENIA
     Dosage: UNK
     Route: 048
     Dates: start: 20010701
  2. CLOZARIL [Suspect]
     Dosage: OVERDOSE
     Dates: start: 20130607
  3. CLOZARIL [Suspect]
     Dosage: 700 MG, DAILY
     Route: 048

REACTIONS (4)
  - Overdose [Recovered/Resolved]
  - Depressed mood [Recovered/Resolved]
  - White blood cell count increased [Not Recovered/Not Resolved]
  - Antipsychotic drug level decreased [Unknown]
